FAERS Safety Report 4636479-X (Version None)
Quarter: 2005Q2

REPORT INFORMATION
  Report Type: 
  Country: None (occurrence: None)
  Receive Date: 20050413
  Receipt Date: 20050413
  Transmission Date: 20051028
  Serious: Yes (Life-Threatening, Hospitalization)
  Sender: FDA-Public Use
  Company Number: None

PATIENT
  Age: 58 Year
  Sex: Male
  Weight: 77.1115 kg

DRUGS (6)
  1. ARMOUR THYROID       PHYSICIANS PREFERENCE [Suspect]
     Indication: HORMONE REPLACEMENT THERAPY
     Dosage: ORAL
     Route: 048
     Dates: start: 20041201, end: 20050201
  2. ARMOUR THYROID       PHYSICIANS PREFERENCE [Suspect]
     Indication: HYPOTHYROIDISM
     Dosage: ORAL
     Route: 048
     Dates: start: 20041201, end: 20050201
  3. TESTOSTERONE          PHYSICIANS PREFERENCE [Suspect]
     Indication: BLOOD TESTOSTERONE DECREASED
     Dosage: ORAL
     Route: 048
     Dates: start: 20041201, end: 20050201
  4. TESTOSTERONE          PHYSICIANS PREFERENCE [Suspect]
     Indication: HORMONE REPLACEMENT THERAPY
     Dosage: ORAL
     Route: 048
     Dates: start: 20041201, end: 20050201
  5. NYSTATIN [Concomitant]
  6. DIETARY SUPPLEMENTS [Concomitant]

REACTIONS (3)
  - FEELING ABNORMAL [None]
  - MYOCARDIAL INFARCTION [None]
  - RASH [None]
